FAERS Safety Report 25864292 (Version 1)
Quarter: 2025Q3

REPORT INFORMATION
  Report Type: Spontaneous
  Country: US (occurrence: None)
  Receive Date: 20250929
  Receipt Date: 20250929
  Transmission Date: 20251021
  Serious: Yes (Death)
  Sender: FDA-CTU
  Company Number: None

PATIENT
  Age: 79 Year
  Sex: Female
  Weight: 59.42 kg

DRUGS (11)
  1. PRALUENT [Suspect]
     Active Substance: ALIROCUMAB
     Indication: Hyperlipidaemia
     Dosage: 75 MG/ML Q 2 WEEKS SUBCUTANEOUS
     Route: 058
     Dates: start: 20201103, end: 20250829
  2. TERAZOSIN 10MG (TEN MG) CAPSULES [Concomitant]
  3. OSTEO BI-FLX ADV TRIPLE STR TABS [Concomitant]
  4. BUDESONIDE 3MG DR CAPSULES [Concomitant]
  5. ClLOSTAZOL 100MG TABLETS [Concomitant]
  6. TURMERIC 450MG CAPSULES [Concomitant]
  7. DULOXETINE [Concomitant]
     Active Substance: DULOXETINE
  8. METOPROLOL TARTRATE 100MG TABLETS [Concomitant]
  9. NORCO 5/325MG TABLETS [Concomitant]
  10. HYDROCHLOROTHIAZIDE\VALSARTAN [Concomitant]
     Active Substance: HYDROCHLOROTHIAZIDE\VALSARTAN
  11. VENTOLIN HFA INH W/DOS CTR 200PUFFS [Concomitant]

REACTIONS (1)
  - Death [None]

NARRATIVE: CASE EVENT DATE: 20250829
